FAERS Safety Report 18853202 (Version 2)
Quarter: 2021Q2

REPORT INFORMATION
  Report Type: Other
  Country: US (occurrence: US)
  Receive Date: 20210205
  Receipt Date: 20210414
  Transmission Date: 20210717
  Serious: Yes (Other)
  Sender: FDA-Public Use
  Company Number: US-ROCHE-2763159

PATIENT
  Sex: Female

DRUGS (8)
  1. TAMSULOSIN [Concomitant]
     Active Substance: TAMSULOSIN
  2. PRAMIPEXOLE. [Concomitant]
     Active Substance: PRAMIPEXOLE
  3. METOPROLOL TARTRATE. [Concomitant]
     Active Substance: METOPROLOL TARTRATE
  4. OCREVUS [Suspect]
     Active Substance: OCRELIZUMAB
     Indication: PRIMARY PROGRESSIVE MULTIPLE SCLEROSIS
     Dosage: (PRECRIBED: INITIAL DOSE INFUSE IV 300 MG DAY AND DAY 15, SUBSEQUENT DOSE INFUSE IV 600 MG EVERY 6 M
     Route: 042
  5. ROSUVASTATIN. [Concomitant]
     Active Substance: ROSUVASTATIN
  6. FLUOXETINE [Concomitant]
     Active Substance: FLUOXETINE HYDROCHLORIDE
  7. LEVOTHYROXINE. [Concomitant]
     Active Substance: LEVOTHYROXINE
  8. IRON [Concomitant]
     Active Substance: IRON

REACTIONS (1)
  - Clostridium difficile infection [Unknown]
